FAERS Safety Report 8608897-6 (Version None)
Quarter: 2012Q3

REPORT INFORMATION
  Report Type: 
  Country: None (occurrence: None)
  Receive Date: 20120821
  Receipt Date: 19960223
  Transmission Date: 20120928
  Serious: Yes (Other)
  Sender: FDA-Public Use
  Company Number: US-ROCHE-1100713

PATIENT
  Sex: Female

DRUGS (3)
  1. GLYBURIDE [Concomitant]
  2. ACTIVASE [Suspect]
     Indication: MYOCARDIAL INFARCTION
  3. LOVASTATIN [Concomitant]

REACTIONS (1)
  - URINARY TRACT INFECTION [None]
